FAERS Safety Report 13635069 (Version 2)
Quarter: 2017Q2

REPORT INFORMATION
  Report Type: Report from Study
  Country: AU (occurrence: AU)
  Receive Date: 20170609
  Receipt Date: 20170613
  Transmission Date: 20170830
  Serious: Yes (Hospitalization)
  Sender: FDA-Public Use
  Company Number: AU-ROCHE-1943411

PATIENT
  Age: 32 Year
  Sex: Male
  Weight: 73 kg

DRUGS (10)
  1. COBIMETINIB [Suspect]
     Active Substance: COBIMETINIB
     Indication: METASTATIC MALIGNANT MELANOMA
     Dosage: DATE OF MOST RECENT DOSE OF COBIMETINIB PRIOR TO AE ONSET: 24/MAY/2017 (60 MG)
     Route: 048
     Dates: start: 20170406
  2. VEMURAFENIB [Suspect]
     Active Substance: VEMURAFENIB
     Indication: METASTATIC MALIGNANT MELANOMA
     Dosage: DATE OF MOST RECENT DOSE OF VEMURAFENIB PRIOR TO AE ONSET: 27/MAY/2017?TOTAL NUMBER OF TABLETS OF LA
     Route: 048
     Dates: start: 20170405
  3. ENDONE [Concomitant]
     Active Substance: OXYCODONE HYDROCHLORIDE
     Indication: ANALGESIC THERAPY
     Route: 065
     Dates: start: 201702
  4. HYDROCORTISONE. [Concomitant]
     Active Substance: HYDROCORTISONE
     Indication: INFUSION RELATED REACTION
     Route: 042
     Dates: start: 20170517, end: 20170517
  5. BLINDED ATEZOLIZUMAB [Suspect]
     Active Substance: ATEZOLIZUMAB
     Indication: METASTATIC MALIGNANT MELANOMA
     Dosage: DATE OF MOST RECENT DOSE OF BLINDED ATEZOLIZUMAB PRIOR TO AE ONSET: 17/MAY/2017
     Route: 042
     Dates: start: 20170503
  6. TARGIN [Concomitant]
     Active Substance: NALOXONE HYDROCHLORIDE\OXYCODONE HYDROCHLORIDE
     Indication: ANALGESIC THERAPY
     Route: 065
     Dates: start: 20170310
  7. LORATADINE. [Concomitant]
     Active Substance: LORATADINE
     Indication: INFUSION RELATED REACTION
     Route: 065
     Dates: start: 20170517, end: 20170519
  8. LORATADINE. [Concomitant]
     Active Substance: LORATADINE
     Route: 065
     Dates: start: 20170531
  9. MORPHINE [Concomitant]
     Active Substance: MORPHINE
     Indication: INFUSION RELATED REACTION
     Route: 065
     Dates: start: 20170517, end: 20170517
  10. PARACETAMOL [Concomitant]
     Active Substance: ACETAMINOPHEN
     Indication: INFUSION RELATED REACTION
     Route: 065
     Dates: start: 20170517, end: 20170517

REACTIONS (1)
  - Photosensitivity reaction [Not Recovered/Not Resolved]

NARRATIVE: CASE EVENT DATE: 20170528
